FAERS Safety Report 24142130 (Version 1)
Quarter: 2024Q3

REPORT INFORMATION
  Report Type: Spontaneous
  Country: KR (occurrence: None)
  Receive Date: 20240726
  Receipt Date: 20240726
  Transmission Date: 20241017
  Serious: Yes (Other)
  Sender: ASTRAZENECA
  Company Number: 2024A166653

PATIENT
  Age: 56 Year
  Sex: Male

DRUGS (3)
  1. TAGRISSO [Suspect]
     Active Substance: OSIMERTINIB
     Indication: Lung squamous cell carcinoma stage I
     Dates: start: 202103, end: 202110
  2. TAGRISSO [Suspect]
     Active Substance: OSIMERTINIB
     Indication: Lung squamous cell carcinoma stage I
     Dates: start: 202212
  3. AFATINIB [Concomitant]
     Active Substance: AFATINIB
     Dates: start: 202007

REACTIONS (1)
  - Malignant neoplasm progression [Unknown]

NARRATIVE: CASE EVENT DATE: 20211001
